FAERS Safety Report 6607861-6 (Version None)
Quarter: 2010Q1

REPORT INFORMATION
  Report Type: 
  Country: None (occurrence: None)
  Receive Date: 20100225
  Receipt Date: 20100225
  Transmission Date: 20100710
  Serious: Yes (Hospitalization)
  Sender: FDA-Public Use
  Company Number: None

PATIENT
  Age: 76 Year
  Sex: Male
  Weight: 100 kg

DRUGS (2)
  1. WARFARIN SODIUM [Suspect]
     Indication: ATRIAL FIBRILLATION
     Dosage: 5 MG UD PO
     Route: 048
     Dates: start: 19970101, end: 20100219
  2. ASPIRIN [Suspect]
     Indication: SURGERY
     Dosage: 81 MG EVERY DAY PO
     Route: 048
     Dates: start: 20091130, end: 20100219

REACTIONS (2)
  - ANAEMIA [None]
  - RECTAL HAEMORRHAGE [None]
